FAERS Safety Report 6305335-3 (Version None)
Quarter: 2009Q3

REPORT INFORMATION
  Report Type: 
  Country: None (occurrence: None)
  Receive Date: 20090811
  Receipt Date: 20090803
  Transmission Date: 20100115
  Serious: Yes (Hospitalization)
  Sender: FDA-Public Use
  Company Number: NL-ABBOTT-09P-114-0588632-00

PATIENT
  Sex: Female

DRUGS (2)
  1. DEPAKENE [Suspect]
     Indication: EPILEPSY
     Route: 048
     Dates: start: 20081013
  2. KEPPRA [Suspect]
     Indication: EPILEPSY
     Route: 048
     Dates: end: 20090701

REACTIONS (2)
  - CONDITION AGGRAVATED [None]
  - DEMENTIA [None]
